FAERS Safety Report 18992138 (Version 1)
Quarter: 2021Q1

REPORT INFORMATION
  Report Type: Spontaneous
  Country: US (occurrence: US)
  Receive Date: 20210310
  Receipt Date: 20210310
  Transmission Date: 20210420
  Serious: No
  Sender: FDA-Public Use
  Company Number: None

PATIENT
  Age: 56 Year
  Sex: Female
  Weight: 77 kg

DRUGS (1)
  1. ULTOMIRIS [Suspect]
     Active Substance: RAVULIZUMAB-CWVZ
     Indication: NEOPLASM MALIGNANT
     Route: 041
     Dates: start: 20210303, end: 20210303

REACTIONS (1)
  - Pruritus [None]

NARRATIVE: CASE EVENT DATE: 20210303
